FAERS Safety Report 6454744-0 (Version None)
Quarter: 2009Q4

REPORT INFORMATION
  Report Type: 
  Country: None (occurrence: None)
  Receive Date: 20091118
  Receipt Date: 20091113
  Transmission Date: 20100525
  Serious: Yes (Hospitalization, Other)
  Sender: FDA-Public Use
  Company Number: 2009SP001618

PATIENT
  Age: 58 Year
  Sex: Female
  Weight: 81.4 kg

DRUGS (9)
  1. BOCEPREVIR (SCH 503034) [Suspect]
     Indication: HEPATITIS C
     Dosage: 800 MG;TID;PO; 2200 MG;QD;PO 800 MG;TID;PO ; 600 MG;TID;PO
     Route: 048
     Dates: start: 20081219, end: 20090114
  2. BOCEPREVIR (SCH 503034) [Suspect]
     Indication: HEPATITIS C
     Dosage: 800 MG;TID;PO; 2200 MG;QD;PO 800 MG;TID;PO ; 600 MG;TID;PO
     Route: 048
     Dates: start: 20090115, end: 20090118
  3. BOCEPREVIR (SCH 503034) [Suspect]
     Indication: HEPATITIS C
     Dosage: 800 MG;TID;PO; 2200 MG;QD;PO 800 MG;TID;PO ; 600 MG;TID;PO
     Route: 048
     Dates: start: 20090119, end: 20090121
  4. BOCEPREVIR (SCH 503034) [Suspect]
     Indication: HEPATITIS C
     Dosage: 800 MG;TID;PO; 2200 MG;QD;PO 800 MG;TID;PO ; 600 MG;TID;PO
     Route: 048
     Dates: start: 20090123, end: 20090127
  5. PEG-INTRON [Suspect]
     Indication: HEPATITIS C
     Dosage: 150 MCG;QW;SC
     Route: 058
     Dates: start: 20081121, end: 20090123
  6. RIBAVIRIN [Suspect]
     Indication: HEPATITIS C
     Dosage: 1200 MG;QD;PO; 1000 MG;QD;PO;  800 MG;QD;PO
     Route: 048
     Dates: start: 20081121, end: 20090112
  7. RIBAVIRIN [Suspect]
     Indication: HEPATITIS C
     Dosage: 1200 MG;QD;PO; 1000 MG;QD;PO;  800 MG;QD;PO
     Route: 048
     Dates: start: 20090113
  8. CENTRUM [Concomitant]
  9. ADVAIR DISKUS 100/50 [Concomitant]

REACTIONS (8)
  - ANAEMIA [None]
  - ATELECTASIS [None]
  - CHEST PAIN [None]
  - DRUG INTOLERANCE [None]
  - DYSPNOEA EXERTIONAL [None]
  - INFLAMMATION [None]
  - LUNG INFILTRATION [None]
  - RESPIRATORY RATE INCREASED [None]
